FAERS Safety Report 13538459 (Version 3)
Quarter: 2017Q2

REPORT INFORMATION
  Report Type: Spontaneous
  Country: JP (occurrence: JP)
  Receive Date: 20170512
  Receipt Date: 20170627
  Transmission Date: 20170830
  Serious: Yes (Hospitalization)
  Sender: FDA-Public Use
  Company Number: JP-ROCHE-1933231

PATIENT
  Age: 8 Decade
  Sex: Male
  Weight: 60 kg

DRUGS (3)
  1. ROCEPHIN [Suspect]
     Active Substance: CEFTRIAXONE SODIUM
     Indication: LARYNGEAL DISCOMFORT
     Route: 041
     Dates: start: 20170110, end: 20170115
  2. SOLDEM 3A [Concomitant]
     Active Substance: CARBOHYDRATES\POTASSIUM CHLORIDE\SODIUM CHLORIDE\SODIUM LACTATE
     Dosage: DOSAGE IS UNCERTAIN.
     Route: 041
  3. BLOPRESS [Concomitant]
     Active Substance: CANDESARTAN CILEXETIL
     Route: 048

REACTIONS (2)
  - Drug eruption [Recovered/Resolved]
  - Hyperthermia [Unknown]

NARRATIVE: CASE EVENT DATE: 20170112
